FAERS Safety Report 13067637 (Version 1)
Quarter: 2016Q4

REPORT INFORMATION
  Report Type: Spontaneous
  Country: US (occurrence: US)
  Receive Date: 20161228
  Receipt Date: 20161228
  Transmission Date: 20170207
  Serious: Yes (Life-Threatening, Hospitalization, Other)
  Sender: FDA-Public Use
  Company Number: US-MACLEODS PHARMACEUTICALS US LTD-MAC2016004083

PATIENT

DRUGS (2)
  1. ESZOPICLONE. [Suspect]
     Active Substance: ESZOPICLONE
     Indication: DEPRESSION
     Dosage: 2 MG, QD  AT BED TIME
     Route: 065
  2. SERTRALINE [Interacting]
     Active Substance: SERTRALINE HYDROCHLORIDE
     Indication: DEPRESSION
     Dosage: 50 MG, QD  AT BED TIME
     Route: 065

REACTIONS (7)
  - Agitation [Recovering/Resolving]
  - Paranoia [Recovering/Resolving]
  - Drug interaction [Recovering/Resolving]
  - Parasomnia [Recovering/Resolving]
  - Suicide attempt [Recovering/Resolving]
  - Restlessness [Recovering/Resolving]
  - Condition aggravated [Recovering/Resolving]
